FAERS Safety Report 9846588 (Version 1)
Quarter: 2014Q1

REPORT INFORMATION
  Report Type: Report from Study
  Country: US (occurrence: US)
  Receive Date: 20140127
  Receipt Date: 20140127
  Transmission Date: 20141002
  Serious: Yes (Hospitalization)
  Sender: FDA-Public Use
  Company Number: US-GLAXOSMITHKLINE-A1058108A

PATIENT
  Sex: Female
  Weight: 76.6 kg

DRUGS (2)
  1. GSK2141795 [Suspect]
     Indication: MALIGNANT MELANOMA
     Route: 048
  2. TRAMETINIB [Suspect]
     Indication: MALIGNANT MELANOMA
     Route: 048

REACTIONS (1)
  - Convulsion [Unknown]
